FAERS Safety Report 21510930 (Version 1)
Quarter: 2022Q4

REPORT INFORMATION
  Report Type: Spontaneous
  Country: US (occurrence: US)
  Receive Date: 20221026
  Receipt Date: 20221026
  Transmission Date: 20230113
  Serious: No
  Sender: FDA-Public Use
  Company Number: US-GLAXOSMITHKLINE-USCH2022040308

PATIENT
  Sex: Female

DRUGS (1)
  1. ALLI [Suspect]
     Active Substance: ORLISTAT
     Indication: Weight control
     Dosage: UNK

REACTIONS (3)
  - Steatorrhoea [Unknown]
  - Faeces discoloured [Unknown]
  - Anal incontinence [Unknown]
